FAERS Safety Report 22589724 (Version 1)
Quarter: 2023Q2

REPORT INFORMATION
  Report Type: Report from Study
  Country: FR (occurrence: FR)
  Receive Date: 20230612
  Receipt Date: 20230612
  Transmission Date: 20230722
  Serious: Yes (Hospitalization)
  Sender: FDA-Public Use
  Company Number: FR-PFIZER INC-PV202300098643

PATIENT
  Age: 75 Year
  Sex: Male

DRUGS (6)
  1. AVELUMAB [Suspect]
     Active Substance: AVELUMAB
     Indication: Transitional cell carcinoma
     Dosage: 800 MG, EVERY 0.5 CYCLE (D1 AND D15 OF CYCLES OF 28 DAYS)
     Route: 042
     Dates: start: 20230224, end: 20230504
  2. TALAZOPARIB [Suspect]
     Active Substance: TALAZOPARIB
     Indication: Transitional cell carcinoma
     Dosage: 1 MG, 28 DAYS CYCLE EXCEPT FOR PATIENTS WITH MILD RENAL IMPAIRMENT WHO WILL RECEIVE 0.75 MG PER DAY.
     Route: 048
     Dates: start: 20230224, end: 20230324
  3. TALAZOPARIB [Suspect]
     Active Substance: TALAZOPARIB
     Dosage: 1 MG, 28 DAYS CYCLE EXCEPT FOR PATIENTS
     Route: 048
     Dates: start: 20230407, end: 20230504
  4. LEVOTHYROXINE [Concomitant]
     Active Substance: LEVOTHYROXINE
     Indication: Hypothyroidism
     Route: 048
  5. ATORVASTATIN [Concomitant]
     Active Substance: ATORVASTATIN
     Indication: Hypercholesterolaemia
     Route: 048
  6. METFORMIN HYDROCHLORIDE\SAXAGLIPTIN [Concomitant]
     Active Substance: METFORMIN HYDROCHLORIDE\SAXAGLIPTIN
     Indication: Diabetes mellitus
     Dosage: 2,5 / 100 MG DAILY
     Route: 048

REACTIONS (8)
  - Somnolence [Not Recovered/Not Resolved]
  - Hyperkalaemia [Not Recovered/Not Resolved]
  - Hyponatraemia [Not Recovered/Not Resolved]
  - Hypomagnesaemia [Not Recovered/Not Resolved]
  - Adrenal insufficiency [Not Recovered/Not Resolved]
  - Nausea [Not Recovered/Not Resolved]
  - Weight decreased [Not Recovered/Not Resolved]
  - Asthenia [Not Recovered/Not Resolved]

NARRATIVE: CASE EVENT DATE: 20230522
